FAERS Safety Report 10085039 (Version 1)
Quarter: 2014Q2

REPORT INFORMATION
  Report Type: Other
  Country: IN (occurrence: IN)
  Receive Date: 20140417
  Receipt Date: 20140417
  Transmission Date: 20141212
  Serious: Yes (Other)
  Sender: FDA-Public Use
  Company Number: IN-BRISTOL-MYERS SQUIBB COMPANY-20622676

PATIENT
  Age: 28 Year
  Sex: Male

DRUGS (5)
  1. ARIPIPRAZOLE [Suspect]
     Indication: SCHIZOPHRENIA
     Dosage: 5MG:2 WEEKS,DOSE INCRSD:10MG(6WEEKS),15MG.
  2. RISPERIDONE [Suspect]
     Indication: SCHIZOPHRENIA
     Dosage: DOSE INCRSD:8MG,12MG,16MG,20MG
  3. OLANZAPINE [Suspect]
     Indication: SCHIZOPHRENIA
     Dosage: DOSE INCRSD TO:20MG?15MG FOR 1 MONTH
  4. SODIUM VALPROATE [Concomitant]
     Indication: SCHIZOPHRENIA
  5. TRIHEXYPHENIDYL [Concomitant]
     Indication: SCHIZOPHRENIA
     Dosage: 4MG,6MG,8MG(4WEEKS),10MG

REACTIONS (2)
  - Condition aggravated [Unknown]
  - Weight increased [Unknown]
